FAERS Safety Report 19463242 (Version 1)
Quarter: 2021Q2

REPORT INFORMATION
  Report Type: Spontaneous
  Country: NL (occurrence: NL)
  Receive Date: 20210625
  Receipt Date: 20210625
  Transmission Date: 20210717
  Serious: Yes (Other)
  Sender: FDA-Public Use
  Company Number: NL-MYLANLABS-2020M1084552

PATIENT
  Sex: Female

DRUGS (4)
  1. VELCADE [Suspect]
     Active Substance: BORTEZOMIB
     Indication: PLASMA CELL MYELOMA
     Dosage: 3 TREATMENTS (6, 13 AND 20 JULY
     Route: 065
     Dates: start: 20200706, end: 20200720
  2. DARZALEX [Suspect]
     Active Substance: DARATUMUMAB
     Dosage: CONCENTRATE FOR SOLUTION FOR INFUSION
     Route: 042
     Dates: start: 20201217
  3. PREDNISOLONE. [Suspect]
     Active Substance: PREDNISOLONE
     Indication: PLASMA CELL MYELOMA
     Dosage: 100 MILLIGRAM
     Route: 065
     Dates: start: 20200706
  4. DARZALEX [Suspect]
     Active Substance: DARATUMUMAB
     Indication: PLASMA CELL MYELOMA
     Dosage: CONCENTRATE FOR SOLUTION FOR INFUSION
     Route: 042
     Dates: start: 20200706

REACTIONS (2)
  - Neuropathy peripheral [Recovered/Resolved]
  - COVID-19 [Recovered/Resolved]

NARRATIVE: CASE EVENT DATE: 20201119
